FAERS Safety Report 25141042 (Version 1)
Quarter: 2025Q1

REPORT INFORMATION
  Report Type: Spontaneous
  Country: US (occurrence: None)
  Receive Date: 20250331
  Receipt Date: 20250331
  Transmission Date: 20250408
  Serious: No
  Sender: FDA-CTU
  Company Number: None

PATIENT
  Age: 27 Year
  Sex: Female
  Weight: 76.5 kg

DRUGS (1)
  1. SKYLA [Suspect]
     Active Substance: LEVONORGESTREL
     Indication: Contraception
     Dates: start: 20230620, end: 20240729

REACTIONS (5)
  - Complication associated with device [None]
  - Depression [None]
  - Weight increased [None]
  - Alopecia [None]
  - Mood altered [None]

NARRATIVE: CASE EVENT DATE: 20240620
